FAERS Safety Report 24588827 (Version 1)
Quarter: 2024Q4

REPORT INFORMATION
  Report Type: Spontaneous
  Country: US (occurrence: US)
  Receive Date: 20241107
  Receipt Date: 20241107
  Transmission Date: 20250115
  Serious: No
  Sender: PFIZER
  Company Number: US-PFIZER INC-202400294339

PATIENT
  Age: 51 Year
  Sex: Female

DRUGS (2)
  1. METHOTREXATE SODIUM [Suspect]
     Active Substance: METHOTREXATE SODIUM
     Indication: Arthritis
     Dosage: UNK
  2. METHOTREXATE SODIUM [Suspect]
     Active Substance: METHOTREXATE SODIUM
     Indication: Spondyloarthropathy

REACTIONS (6)
  - Abdominal discomfort [Unknown]
  - Tenosynovitis [Unknown]
  - Neck pain [Unknown]
  - Radiculopathy [Unknown]
  - Muscular weakness [Unknown]
  - Drug intolerance [Unknown]
